FAERS Safety Report 19464380 (Version 1)
Quarter: 2021Q2

REPORT INFORMATION
  Report Type: Spontaneous
  Country: IT (occurrence: IT)
  Receive Date: 20210627
  Receipt Date: 20210627
  Transmission Date: 20210717
  Serious: Yes (Other)
  Sender: FDA-Public Use
  Company Number: IT-AUROBINDO-AUR-APL-2021-027126

PATIENT
  Age: 41 Year
  Sex: Male

DRUGS (8)
  1. GABAPENTIN. [Concomitant]
     Active Substance: GABAPENTIN
     Indication: HICCUPS
     Dosage: 100 MILLIGRAM, RECEIVED TWO DOSES OF 100 MG
     Route: 065
  2. ARIPIPRAZOLE. [Suspect]
     Active Substance: ARIPIPRAZOLE
     Indication: BIPOLAR I DISORDER
     Dosage: 5 MILLIGRAM, ONCE A DAY, ADDED ON THIRD DAY
     Route: 065
  3. ARIPIPRAZOLE. [Suspect]
     Active Substance: ARIPIPRAZOLE
     Dosage: 7.5 MILLIGRAM, ONCE A DAY, INCREASED UP TO 7.5 MG/DAY THE NEXT DAY
     Route: 065
  4. BIPERIDEN HYDROCHLORIDE [Concomitant]
     Active Substance: BIPERIDEN HYDROCHLORIDE
     Indication: DEPRESSION
     Dosage: 2 MILLIGRAM, ONCE A DAY
     Route: 065
  5. VALPROIC ACID. [Concomitant]
     Active Substance: VALPROIC ACID
     Indication: DEPRESSION
     Dosage: 1000 MILLIGRAM, ONCE A DAY
     Route: 065
  6. OLANZAPINE. [Concomitant]
     Active Substance: OLANZAPINE
     Dosage: 20 MILLIGRAM, ONCE A DAY
     Route: 065
  7. CARBOLITHIUM [Concomitant]
     Active Substance: LITHIUM CARBONATE
     Indication: BIPOLAR I DISORDER
     Dosage: 600 MILLIGRAM, ONCE A DAY
     Route: 065
  8. OLANZAPINE. [Concomitant]
     Active Substance: OLANZAPINE
     Indication: DEPRESSION
     Dosage: OLANZAPINE WAS GRADUALLY STOPPED (WEANED)
     Route: 065

REACTIONS (2)
  - Off label use [Unknown]
  - Hiccups [Recovered/Resolved]
